FAERS Safety Report 15556924 (Version 4)
Quarter: 2019Q1

REPORT INFORMATION
  Report Type: Report from Study
  Country: US (occurrence: US)
  Receive Date: 20181026
  Receipt Date: 20190125
  Transmission Date: 20190417
  Serious: Yes (Hospitalization, Other)
  Sender: FDA-Public Use
  Company Number: US-JAZZ-2018-US-015284

PATIENT
  Age: 34 Year
  Sex: Female

DRUGS (11)
  1. XYREM [Suspect]
     Active Substance: SODIUM OXYBATE
     Indication: NARCOLEPSY
     Dosage: 1.5 G, BID
     Route: 048
     Dates: start: 201808, end: 201808
  2. XYREM [Suspect]
     Active Substance: SODIUM OXYBATE
     Dosage: 3 G , BID
     Route: 048
     Dates: start: 2018
  3. BUSPIRONE HCL [Concomitant]
     Active Substance: BUSPIRONE HYDROCHLORIDE
  4. MODAFINIL. [Concomitant]
     Active Substance: MODAFINIL
  5. XYREM [Suspect]
     Active Substance: SODIUM OXYBATE
     Dosage: 2.25 G, BID
     Route: 048
     Dates: start: 201809, end: 2018
  6. ASPIRIN EC [Concomitant]
     Active Substance: ASPIRIN
  7. PROZAC [Concomitant]
     Active Substance: FLUOXETINE HYDROCHLORIDE
  8. VYVANSE [Concomitant]
     Active Substance: LISDEXAMFETAMINE DIMESYLATE
  9. VITAMIN D3 [Concomitant]
     Active Substance: CHOLECALCIFEROL
  10. XYREM [Suspect]
     Active Substance: SODIUM OXYBATE
     Indication: CATAPLEXY
     Dosage: DOSE ADJUSTMENT
     Route: 048
     Dates: start: 201808, end: 201809
  11. YAZ [Concomitant]
     Active Substance: DROSPIRENONE\ETHINYL ESTRADIOL

REACTIONS (8)
  - Mitral valve prolapse [Unknown]
  - Cardiac murmur [Unknown]
  - Chest pain [Unknown]
  - Cardiomegaly [Unknown]
  - Serotonin syndrome [Recovered/Resolved]
  - Pain in extremity [Unknown]
  - Depression [Not Recovered/Not Resolved]
  - Vision blurred [Unknown]

NARRATIVE: CASE EVENT DATE: 2018
